FAERS Safety Report 22152735 (Version 3)
Quarter: 2023Q2

REPORT INFORMATION
  Report Type: Spontaneous
  Country: JP (occurrence: None)
  Receive Date: 20230329
  Receipt Date: 20230502
  Transmission Date: 20230722
  Serious: Yes (Death)
  Sender: FDA-Public Use
  Company Number: 2023A068120

PATIENT
  Age: 80 Year
  Sex: Female
  Weight: 35 kg

DRUGS (15)
  1. DAPAGLIFLOZIN [Suspect]
     Active Substance: DAPAGLIFLOZIN
     Indication: Cardiac failure congestive
     Dosage: DOSE UNKNOWN
     Route: 048
     Dates: start: 20230314, end: 20230317
  2. OMEPRAZOLE [Concomitant]
     Active Substance: OMEPRAZOLE
     Indication: Gastrooesophageal reflux disease
     Route: 048
     Dates: end: 20230317
  3. CARVEDILOL [Concomitant]
     Active Substance: CARVEDILOL
     Indication: Dilated cardiomyopathy
     Route: 048
     Dates: end: 20230317
  4. VASOLAN [Concomitant]
     Indication: Atrial tachycardia
     Route: 048
     Dates: end: 20230317
  5. TORSEMIDE [Concomitant]
     Active Substance: TORSEMIDE
     Indication: Cardiac failure congestive
     Dosage: 4.0MG UNKNOWN
     Route: 048
     Dates: end: 20230305
  6. TORSEMIDE [Concomitant]
     Active Substance: TORSEMIDE
     Indication: Cardiac failure congestive
     Route: 048
     Dates: start: 20230306, end: 20230317
  7. SPIRONOLACTONE [Concomitant]
     Active Substance: SPIRONOLACTONE
     Indication: Cardiac failure congestive
     Route: 048
     Dates: end: 20230317
  8. ATORVASTATIN [Concomitant]
     Active Substance: ATORVASTATIN
     Indication: Hypercholesterolaemia
     Route: 048
     Dates: end: 20230317
  9. ACETAMINOPHEN\TRAMADOL HYDROCHLORIDE [Concomitant]
     Active Substance: ACETAMINOPHEN\TRAMADOL HYDROCHLORIDE
     Indication: Spinal compression fracture
     Route: 048
     Dates: start: 2021, end: 20230317
  10. MOSAPRIDE CITRATE DIHYDRATE [Concomitant]
     Active Substance: MOSAPRIDE CITRATE DIHYDRATE
     Indication: Chronic gastritis
     Route: 048
     Dates: start: 20230306, end: 20230317
  11. AM [Concomitant]
     Indication: Chronic gastritis
     Route: 048
     Dates: end: 20230317
  12. DIMETHICONE [Concomitant]
     Active Substance: DIMETHICONE
     Indication: Chronic gastritis
     Route: 048
     Dates: end: 20230317
  13. MAGNESIUM OXIDE [Concomitant]
     Active Substance: MAGNESIUM OXIDE
     Indication: Constipation
     Route: 048
     Dates: end: 20230317
  14. ETIZOLAM [Concomitant]
     Active Substance: ETIZOLAM
     Indication: Anxiety disorder
     Route: 048
     Dates: end: 20230317
  15. ZOPICLONE [Concomitant]
     Active Substance: ZOPICLONE
     Indication: Insomnia
     Route: 048
     Dates: end: 20230317

REACTIONS (5)
  - Liver disorder [Fatal]
  - Low cardiac output syndrome [Fatal]
  - Renal disorder [Fatal]
  - Hyperkalaemia [Fatal]
  - Underdose [Unknown]

NARRATIVE: CASE EVENT DATE: 20230317
